FAERS Safety Report 6071428-1 (Version None)
Quarter: 2009Q1

REPORT INFORMATION
  Report Type: 
  Country: None (occurrence: None)
  Receive Date: 20090202
  Receipt Date: 20081106
  Transmission Date: 20090719
  Serious: No
  Sender: FDA-Public Use
  Company Number: US024602

PATIENT
  Age: 70 Year
  Sex: Male
  Weight: 107 kg

DRUGS (2)
  1. TREANDA [Suspect]
     Indication: CHRONIC LYMPHOCYTIC LEUKAEMIA
     Dosage: 100 MG/M2, DAYS 1 AND 2 OF 28 DAY CYCLE (230 MG), INTRAVENOUS (NOT OTHERWISE SPECIFIED)
     Route: 042
     Dates: start: 20080825
  2. RITUXAN [Concomitant]

REACTIONS (1)
  - HERPES ZOSTER [None]
